FAERS Safety Report 8128217-3 (Version None)
Quarter: 2012Q1

REPORT INFORMATION
  Report Type: 
  Country: None (occurrence: None)
  Receive Date: 20120210
  Receipt Date: 20120123
  Transmission Date: 20120608
  Serious: Yes (Hospitalization)
  Sender: FDA-Public Use
  Company Number: FR-PFIZER INC-K201001126

PATIENT
  Age: 82 Year
  Sex: Female

DRUGS (5)
  1. ATORVASTATIN [Suspect]
     Dosage: UNK
     Route: 048
     Dates: end: 20100112
  2. BISOPROLOL FUMARATE [Suspect]
     Dosage: UNK
     Route: 048
     Dates: end: 20100112
  3. ARICEPT [Suspect]
     Indication: DEMENTIA ALZHEIMER'S TYPE
     Dosage: UNK
     Route: 048
     Dates: end: 20100112
  4. RAMIPRIL [Suspect]
     Dosage: UNK
     Route: 048
     Dates: end: 20100112
  5. ASPIRIN [Concomitant]
     Dosage: UNK

REACTIONS (2)
  - BRADYCARDIA [None]
  - MALAISE [None]
